FAERS Safety Report 9384592 (Version 3)
Quarter: 2019Q4

REPORT INFORMATION
  Report Type: Spontaneous
  Country: US (occurrence: US)
  Receive Date: 20130705
  Receipt Date: 20191227
  Transmission Date: 20200122
  Serious: Yes (Death, Life-Threatening, Hospitalization, Other)
  Sender: FDA-Public Use
  Company Number: US-AMGEN-USASP2013046570

PATIENT

DRUGS (1)
  1. XGEVA [Suspect]
     Active Substance: DENOSUMAB
     Indication: HORMONE-REFRACTORY PROSTATE CANCER
     Dosage: 120 MILLIGRAM
     Route: 058

REACTIONS (6)
  - Hypophosphataemia [Unknown]
  - Hypocalcaemia [Recovered/Resolved]
  - Prostatic specific antigen increased [Unknown]
  - Blood alkaline phosphatase increased [Unknown]
  - Disease progression [Fatal]
  - Blood parathyroid hormone increased [Unknown]
